FAERS Safety Report 18522993 (Version 1)
Quarter: 2020Q4

REPORT INFORMATION
  Report Type: Spontaneous
  Country: US (occurrence: US)
  Receive Date: 20201119
  Receipt Date: 20201119
  Transmission Date: 20210114
  Serious: Yes (Death)
  Sender: FDA-Public Use
  Company Number: US-MYLANLABS-2020M1095304

PATIENT
  Sex: Female

DRUGS (22)
  1. METRONIDAZOLE. [Suspect]
     Active Substance: METRONIDAZOLE
     Indication: ANTIBIOTIC THERAPY
     Dosage: DURING FIRST INDUCTION CHEMOTHERAPY AL1
     Route: 065
  2. LEVOFLOXACIN. [Suspect]
     Active Substance: LEVOFLOXACIN
     Dosage: DURING THIRD PHASE AL2
     Route: 065
  3. VANCOMYCIN [Suspect]
     Active Substance: VANCOMYCIN
     Dosage: DURING THIRD PHASE AL2
     Route: 042
  4. SULPHAMETHOXAZOLE/TRIMETHOPRIM [Suspect]
     Active Substance: SULFAMETHOXAZOLE\TRIMETHOPRIM
     Indication: ANTIBIOTIC THERAPY
     Dosage: DURING REMISSION AFTER HCT PHASE
     Route: 065
  5. AMIKACIN. [Suspect]
     Active Substance: AMIKACIN
     Dosage: DURING SECOND PHASE (HCT)
     Route: 065
  6. MEROPENEM. [Suspect]
     Active Substance: MEROPENEM
     Dosage: DURING REMISSION AFTER HCT
     Route: 065
  7. AZITHROMYCIN ANHYDROUS. [Suspect]
     Active Substance: AZITHROMYCIN ANHYDROUS
     Dosage: DURING THIRD PHASE AL2
     Route: 065
  8. LEVOFLOXACIN. [Suspect]
     Active Substance: LEVOFLOXACIN
     Dosage: IN BETWEEN THE AL1 AND HCT PHASE
     Route: 065
  9. CEFEPIME [Suspect]
     Active Substance: CEFEPIME HYDROCHLORIDE
     Indication: ANTIBIOTIC THERAPY
     Dosage: DURING FIRST INDUCTION CHEMOTHERAPY AL1
     Route: 065
  10. VANCOMYCIN [Suspect]
     Active Substance: VANCOMYCIN
     Dosage: DURING SECOND PHASE (HCT)
     Route: 042
  11. CEFEPIME [Suspect]
     Active Substance: CEFEPIME HYDROCHLORIDE
     Dosage: DURING THIRD PHASE AL2
     Route: 065
  12. AMIKACIN. [Suspect]
     Active Substance: AMIKACIN
     Dosage: DURING REMISSION AFTER HCT
     Route: 065
  13. LEVOFLOXACIN. [Suspect]
     Active Substance: LEVOFLOXACIN
     Dosage: DURING REMISSION AFTER HCT
     Route: 065
  14. VANCOMYCIN [Suspect]
     Active Substance: VANCOMYCIN
     Indication: ANTIBIOTIC THERAPY
     Dosage: DURING FIRST INDUCTION CHEMOTHERAPY AL1
     Route: 042
  15. LEVOFLOXACIN. [Suspect]
     Active Substance: LEVOFLOXACIN
     Dosage: DURING SECOND PHASE (HCT)
     Route: 065
  16. CIPROFLOXACIN. [Suspect]
     Active Substance: CIPROFLOXACIN
     Indication: ANTIBIOTIC THERAPY
     Dosage: DURING REMISSION AFTER HCT PHASE
     Route: 065
  17. AMIKACIN. [Suspect]
     Active Substance: AMIKACIN
     Indication: ANTIBIOTIC THERAPY
     Dosage: DURING FIRST INDUCTION CHEMOTHERAPY AL1
     Route: 065
  18. MEROPENEM. [Suspect]
     Active Substance: MEROPENEM
     Indication: ANTIBIOTIC THERAPY
     Dosage: DURING SECOND PHASE (HCT)
     Route: 065
  19. LEVOFLOXACIN. [Suspect]
     Active Substance: LEVOFLOXACIN
     Indication: ANTIBIOTIC THERAPY
     Dosage: DURING FIRST INDUCTION CHEMOTHERAPY AL1
     Route: 065
  20. AZITHROMYCIN ANHYDROUS. [Suspect]
     Active Substance: AZITHROMYCIN ANHYDROUS
     Indication: ANTIBIOTIC THERAPY
     Dosage: DURING FIRST INDUCTION CHEMOTHERAPY AL1
     Route: 065
  21. CEFEPIME [Suspect]
     Active Substance: CEFEPIME HYDROCHLORIDE
     Dosage: DURING SECOND PHASE (HCT)
     Route: 065
  22. CEFEPIME [Suspect]
     Active Substance: CEFEPIME HYDROCHLORIDE
     Dosage: DURING REMISSION AFTER HCT
     Route: 065

REACTIONS (2)
  - Dysbiosis [Fatal]
  - Clostridium difficile colitis [Fatal]
